FAERS Safety Report 7474776-3 (Version None)
Quarter: 2011Q2

REPORT INFORMATION
  Report Type: 
  Country: None (occurrence: None)
  Receive Date: 20110505
  Receipt Date: 20110419
  Transmission Date: 20111010
  Serious: Yes (Other)
  Sender: FDA-Public Use
  Company Number: 1000020575

PATIENT
  Age: 24 Year
  Sex: Male
  Weight: 88.9 kg

DRUGS (3)
  1. CITALOPRAM HYDROBROMIDE [Suspect]
     Indication: OBSESSIVE-COMPULSIVE DISORDER
     Dosage: 40 MG (40 MG, 1 IN 1 D), ORAL
     Route: 048
     Dates: end: 20030120
  2. LORAZEPAM [Concomitant]
  3. CITALOPRAM HYDROBROMIDE [Suspect]
     Indication: OBSESSIVE-COMPULSIVE DISORDER
     Dosage: 20 MG (20 MG, 1 IN 1 D), ORAL
     Route: 048
     Dates: start: 20081227

REACTIONS (8)
  - ORGASMIC SENSATION DECREASED [None]
  - SERUM FERRITIN DECREASED [None]
  - PREMATURE EJACULATION [None]
  - HEADACHE [None]
  - STRESS [None]
  - LIBIDO DECREASED [None]
  - DEPRESSION [None]
  - SEXUAL DYSFUNCTION [None]
